FAERS Safety Report 6367821-X (Version None)
Quarter: 2009Q3

REPORT INFORMATION
  Report Type: 
  Country: None (occurrence: None)
  Receive Date: 20090921
  Receipt Date: 20090911
  Transmission Date: 20100115
  Serious: Yes (Other)
  Sender: FDA-Public Use
  Company Number: AU-ABBOTT-09P-008-0596739-00

PATIENT
  Age: 5 Year

DRUGS (1)
  1. EPILIM [Suspect]
     Indication: DRUG USE FOR UNKNOWN INDICATION
     Route: 048
     Dates: start: 20090817

REACTIONS (5)
  - CONDITION AGGRAVATED [None]
  - EMOTIONAL DISORDER [None]
  - PETIT MAL EPILEPSY [None]
  - SOMNOLENCE [None]
  - TREMOR [None]
